FAERS Safety Report 23292991 (Version 2)
Quarter: 2023Q4

REPORT INFORMATION
  Report Type: Spontaneous
  Country: SE (occurrence: SE)
  Receive Date: 20231213
  Receipt Date: 20231222
  Transmission Date: 20240110
  Serious: Yes (Other)
  Sender: FDA-Public Use
  Company Number: SE-002147023-NVSC2023SE264291

PATIENT
  Sex: Male

DRUGS (1)
  1. ILARIS [Suspect]
     Active Substance: CANAKINUMAB
     Indication: Product used for unknown indication
     Dosage: 8 MG/KG
     Route: 065

REACTIONS (6)
  - Haemophagocytic lymphohistiocytosis [Unknown]
  - Encephalitis [Unknown]
  - Agranulocytosis [Unknown]
  - Rash [Unknown]
  - Fatigue [Unknown]
  - Eosinophilia [Unknown]
